FAERS Safety Report 7176608-X (Version None)
Quarter: 2010Q4

REPORT INFORMATION
  Report Type: 
  Country: None (occurrence: None)
  Receive Date: 20101215
  Receipt Date: 20101215
  Transmission Date: 20110411
  Serious: Yes (Other)
  Sender: FDA-Public Use
  Company Number: None

PATIENT
  Age: 61 Year
  Sex: Female
  Weight: 54.4316 kg

DRUGS (1)
  1. RECLAST [Suspect]
     Indication: OSTEOPOROSIS
     Dosage: 5 MG ONCE/YEAR IV DRIP
     Route: 041
     Dates: start: 20101210, end: 20101210

REACTIONS (3)
  - CHILLS [None]
  - MYALGIA [None]
  - MYALGIA INTERCOSTAL [None]
